FAERS Safety Report 4282933-2 (Version None)
Quarter: 2004Q1

REPORT INFORMATION
  Report Type: 
  Country: None (occurrence: None)
  Receive Date: 20040130
  Receipt Date: 20031226
  Transmission Date: 20041129
  Serious: Yes (Life-Threatening)
  Sender: FDA-Public Use
  Company Number: JP-ROCHE-354862

PATIENT
  Age: 54 Year
  Sex: Male
  Weight: 43 kg

DRUGS (4)
  1. ROCEPHIN [Suspect]
     Dosage: ROUTE REPORTED AS DRIP.
     Route: 050
     Dates: start: 20031219, end: 20031219
  2. VALERIN [Concomitant]
     Indication: EPILEPSY
     Dosage: FORMULATION REPORTED AS SYR.
     Route: 048
     Dates: start: 19990723
  3. ALOSENN [Concomitant]
     Indication: CONSTIPATION
     Dosage: FORMULATION REPORTED AS POW.
     Route: 048
     Dates: start: 20000415
  4. CHINESE HERBAL MEDICINE [Concomitant]
     Indication: CONSTIPATION
     Dosage: FORMULATION REPORTED AS POW.
     Route: 048
     Dates: start: 19990815

REACTIONS (2)
  - DRUG ERUPTION [None]
  - SHOCK [None]
